FAERS Safety Report 5403606-6 (Version None)
Quarter: 2007Q3

REPORT INFORMATION
  Report Type: 
  Country: None (occurrence: None)
  Receive Date: 20070802
  Receipt Date: 20070725
  Transmission Date: 20080115
  Serious: Yes (Hospitalization, Other)
  Sender: FDA-Public Use
  Company Number: PHNR2007AU01292

PATIENT
  Age: 33 Year
  Sex: Female

DRUGS (5)
  1. CLOZARIL [Suspect]
     Dosage: UNK, UNK
     Route: 048
     Dates: start: 19990827, end: 20030402
  2. CLOZARIL [Suspect]
     Dosage: 600 MG /D
     Route: 048
     Dates: start: 20050919, end: 20070625
  3. CLOZARIL [Suspect]
     Dosage: 100MG MANE, 400MG NOCTE
     Route: 048
     Dates: start: 20070625
  4. CLOZAPINE [Suspect]
     Dates: start: 20030402, end: 20050918
  5. SERTRALINE [Concomitant]
     Dosage: 300 MG, MANE

REACTIONS (2)
  - ANXIETY [None]
  - GRAND MAL CONVULSION [None]
